FAERS Safety Report 5920423-9 (Version None)
Quarter: 2008Q4

REPORT INFORMATION
  Report Type: 
  Country: None (occurrence: None)
  Receive Date: 20081014
  Receipt Date: 20081001
  Transmission Date: 20090506
  Serious: Yes (Other)
  Sender: FDA-Public Use
  Company Number: CHNY2008JP03681

PATIENT
  Age: 60 Year
  Sex: Male

DRUGS (1)
  1. NICOTINE [Suspect]
     Indication: SMOKING CESSATION THERAPY
     Dosage: 14 MG, OD, TRANSDERMAL
     Route: 062
     Dates: start: 20080916, end: 20080930

REACTIONS (1)
  - HYPERTENSION [None]
